FAERS Safety Report 14009774 (Version 1)
Quarter: 2017Q3

REPORT INFORMATION
  Report Type: Spontaneous
  Country: JP (occurrence: JP)
  Receive Date: 20170925
  Receipt Date: 20170925
  Transmission Date: 20171128
  Serious: Yes (Hospitalization, Other)
  Sender: FDA-Public Use
  Company Number: PHJP2017JP026420

PATIENT
  Age: 43 Year
  Sex: Female

DRUGS (7)
  1. PREDNISOLONE. [Concomitant]
     Active Substance: PREDNISOLONE
     Dosage: 20 MG, UNK
     Route: 065
  2. TALION [Concomitant]
     Active Substance: BEPOTASTINE
     Indication: PRODUCT USED FOR UNKNOWN INDICATION
     Dosage: 2 DF, BID
     Route: 048
  3. PREDNISOLONE. [Concomitant]
     Active Substance: PREDNISOLONE
     Dosage: 20 MG, UNK
     Route: 065
  4. PREDNISOLONE. [Concomitant]
     Active Substance: PREDNISOLONE
     Dosage: 7 MG, UNK
     Route: 065
  5. BONALON [Concomitant]
     Active Substance: ALENDRONATE SODIUM
     Indication: PRODUCT USED FOR UNKNOWN INDICATION
     Dosage: 1 DF, ONCE A WEEK
     Route: 048
  6. NEORAL [Suspect]
     Active Substance: CYCLOSPORINE
     Indication: DRUG REACTION WITH EOSINOPHILIA AND SYSTEMIC SYMPTOMS
     Dosage: 100 MG, UNK
     Route: 048
     Dates: start: 201606, end: 20170719
  7. PREDNISOLONE. [Concomitant]
     Active Substance: PREDNISOLONE
     Indication: PRODUCT USED FOR UNKNOWN INDICATION
     Dosage: 30 MG, UNK
     Route: 065

REACTIONS (5)
  - Lymphoma [Unknown]
  - Product use in unapproved indication [Unknown]
  - Adrenal insufficiency [Unknown]
  - White blood cell count increased [Recovering/Resolving]
  - Leukaemoid reaction [Not Recovered/Not Resolved]

NARRATIVE: CASE EVENT DATE: 201606
